FAERS Safety Report 8785945 (Version 1)
Quarter: 2012Q4

REPORT INFORMATION
  Report Type: 
  Country: GB (occurrence: GB)
  Receive Date: 20120914
  Receipt Date: 20120914
  Transmission Date: 20130627
  Serious: Yes (Hospitalization, Other)
  Sender: FDA-Public Use
  Company Number: GB-PFIZER INC-K200800029

PATIENT
  Sex: Female
  Weight: 2.75 kg

DRUGS (2)
  1. MORPHINE SULFATE [Suspect]
     Dosage: 10 mg, single
     Route: 064
  2. LABETALOL [Concomitant]
     Route: 064

REACTIONS (3)
  - Foetal exposure timing unspecified [Recovered/Resolved]
  - Somnolence neonatal [Recovered/Resolved]
  - Neonatal respiratory depression [Recovered/Resolved]
